FAERS Safety Report 24874314 (Version 1)
Quarter: 2025Q1

REPORT INFORMATION
  Report Type: Spontaneous
  Country: US (occurrence: US)
  Receive Date: 20250122
  Receipt Date: 20250122
  Transmission Date: 20250408
  Serious: Yes (Death, Hospitalization)
  Sender: PFIZER
  Company Number: US-PFIZER INC-202500013130

PATIENT
  Age: 78 Year
  Sex: Female

DRUGS (1)
  1. PREMARIN [Suspect]
     Active Substance: ESTROGENS, CONJUGATED

REACTIONS (4)
  - Septic shock [Fatal]
  - Blood loss anaemia [Fatal]
  - Respiratory failure [Fatal]
  - Heart failure with preserved ejection fraction [Fatal]
